FAERS Safety Report 13360241 (Version 2)
Quarter: 2017Q2

REPORT INFORMATION
  Report Type: Spontaneous
  Country: SK (occurrence: SK)
  Receive Date: 20170322
  Receipt Date: 20170405
  Transmission Date: 20170830
  Serious: Yes (Hospitalization, Other)
  Sender: FDA-Public Use
  Company Number: SK-GILEAD-2017-0263434

PATIENT
  Age: 57 Year
  Sex: Female
  Weight: 79 kg

DRUGS (8)
  1. HARVONI [Suspect]
     Active Substance: LEDIPASVIR\SOFOSBUVIR
     Indication: CHRONIC HEPATITIS C
     Dosage: UNK UNK, QD
     Route: 048
     Dates: start: 201701, end: 2017
  2. EBRANTIL                           /00631801/ [Concomitant]
     Active Substance: URAPIDIL
     Dosage: UNK
     Route: 048
  3. PREDNISONE. [Concomitant]
     Active Substance: PREDNISONE
     Dosage: UNK
     Route: 048
  4. TENAXUM [Concomitant]
     Active Substance: RILMENIDINE
     Dosage: UNK
     Route: 048
  5. AMLOPINE [Concomitant]
     Dosage: UNK
     Route: 048
  6. URSOFALK [Concomitant]
     Active Substance: URSODIOL
     Dosage: 1000 MG, QD
     Route: 048
  7. CORYOL                             /00984501/ [Concomitant]
     Active Substance: CARVEDILOL
     Dosage: UNK
     Route: 048
  8. IRBESARTAN. [Concomitant]
     Active Substance: IRBESARTAN
     Dosage: UNK
     Route: 048

REACTIONS (5)
  - Acute kidney injury [Recovered/Resolved with Sequelae]
  - Cardiac failure congestive [Recovered/Resolved]
  - Pneumonia klebsiella [Unknown]
  - Pyelonephritis [Recovered/Resolved with Sequelae]
  - Fluid overload [Recovered/Resolved]

NARRATIVE: CASE EVENT DATE: 2017
